FAERS Safety Report 7159492-X (Version None)
Quarter: 2010Q4

REPORT INFORMATION
  Report Type: 
  Country: None (occurrence: None)
  Receive Date: 20101214
  Receipt Date: 20101005
  Transmission Date: 20110411
  Serious: Yes (Hospitalization, Other)
  Sender: FDA-Public Use
  Company Number: US-ASTRAZENECA-2010SE43078

PATIENT
  Age: 18992 Day
  Sex: Male
  Weight: 66.2 kg

DRUGS (14)
  1. CRESTOR [Suspect]
     Indication: HYPERLIPIDAEMIA
     Dosage: DAILY
     Route: 048
     Dates: start: 20081120, end: 20100816
  2. CRESTOR [Suspect]
     Indication: CORONARY ARTERY DISEASE
     Dosage: DAILY
     Route: 048
     Dates: start: 20081120, end: 20100816
  3. AMIODARONE HCL [Concomitant]
     Indication: CARDIOMYOPATHY
  4. AMIODARONE HCL [Concomitant]
     Indication: VENTRICULAR TACHYCARDIA
  5. LASIX [Concomitant]
     Indication: CARDIAC FAILURE
  6. COREG CR [Concomitant]
     Indication: CORONARY ARTERY DISEASE
  7. COREG CR [Concomitant]
     Indication: HYPERTENSION
  8. COUMADIN [Concomitant]
     Indication: CARDIOMYOPATHY
  9. RANEXA [Concomitant]
     Indication: ANGINA PECTORIS
  10. SENOKOT [Concomitant]
     Indication: CONSTIPATION
  11. MORPHINE [Concomitant]
     Indication: PAIN
  12. NORCO [Concomitant]
     Indication: PAIN
     Dosage: 10/325 MG PRN
  13. KT [Concomitant]
     Indication: CARDIAC FAILURE CHRONIC
  14. COLACE [Concomitant]
     Indication: CONSTIPATION

REACTIONS (4)
  - ALANINE AMINOTRANSFERASE INCREASED [None]
  - ASPARTATE AMINOTRANSFERASE INCREASED [None]
  - BLOOD CREATINE PHOSPHOKINASE INCREASED [None]
  - RHABDOMYOLYSIS [None]
